FAERS Safety Report 5266277-8 (Version None)
Quarter: 2007Q1

REPORT INFORMATION
  Report Type: 
  Country: None (occurrence: None)
  Receive Date: 20070315
  Receipt Date: 20070314
  Transmission Date: 20070707
  Serious: Yes (Death)
  Sender: FDA-Public Use
  Company Number: US-BRISTOL-MYERS SQUIBB COMPANY-13638788

PATIENT
  Sex: Male

DRUGS (1)
  1. COUMADIN [Suspect]
     Indication: CARDIAC VALVE DISEASE
     Dosage: ALTERNATING DOSES 2MG AND 5MG
     Route: 048

REACTIONS (2)
  - CARDIAC VALVE DISEASE [None]
  - CORONARY ARTERY DISEASE [None]
